FAERS Safety Report 12925313 (Version 1)
Quarter: 2016Q4

REPORT INFORMATION
  Report Type: Spontaneous
  Country: AU (occurrence: AU)
  Receive Date: 20161109
  Receipt Date: 20161109
  Transmission Date: 20170207
  Serious: Yes (Other)
  Sender: FDA-Public Use
  Company Number: AU-009507513-1611AUS001847

PATIENT
  Sex: Male

DRUGS (3)
  1. DIAZOXIDE [Suspect]
     Active Substance: DIAZOXIDE
     Indication: HYPOGLYCAEMIA
     Dosage: 20 MG/KG, QD FOR 5 DAYS
     Route: 048
  2. DEXTROSE. [Concomitant]
     Active Substance: DEXTROSE
     Indication: HYPOGLYCAEMIA
     Dosage: 12 MG/KG/MIN
     Route: 042
  3. GLUCAGON. [Concomitant]
     Active Substance: GLUCAGON
     Indication: HYPOGLYCAEMIA
     Dosage: UNK

REACTIONS (2)
  - Drug ineffective [Unknown]
  - Hyperinsulinaemic hypoglycaemia [Unknown]
